FAERS Safety Report 10640390 (Version 1)
Quarter: 2014Q4

REPORT INFORMATION
  Report Type: Spontaneous
  Country: GB (occurrence: None)
  Receive Date: 20141205
  Receipt Date: 20141205
  Transmission Date: 20150529
  Serious: Yes (Hospitalization)
  Sender: FDA-Public Use
  Company Number: GB-017873

PATIENT

DRUGS (1)
  1. PROPESS (PROPESS) 10 MG (NOT SPECIFIED) [Suspect]
     Active Substance: DINOPROSTONE
     Indication: LABOUR INDUCTION
     Dosage: PROPESS ADMINISTERED TO MOTHER TRANSPLACENTAL)
     Route: 064

REACTIONS (4)
  - Blood pH decreased [None]
  - Foetal exposure during pregnancy [None]
  - Bradycardia foetal [None]
  - Maternal drugs affecting foetus [None]
